FAERS Safety Report 9172902 (Version 2)
Quarter: 2013Q2

REPORT INFORMATION
  Report Type: Report from Study
  Country: JP (occurrence: JP)
  Receive Date: 20130319
  Receipt Date: 20130418
  Transmission Date: 20140414
  Serious: Yes (Other)
  Sender: FDA-Public Use
  Company Number: JP-OTSUKA-JP-2013-10659

PATIENT
  Age: 65 Year
  Sex: Male
  Weight: 68 kg

DRUGS (13)
  1. SAMSCA [Suspect]
     Indication: FLUID RETENTION
     Dosage: 15 MG MILLIGRAM(S), QAM
     Route: 048
     Dates: start: 20130209, end: 20130211
  2. BAYASPIRIN [Concomitant]
     Indication: CARDIAC FAILURE
     Dosage: 100 MG MILLIGRAM(S), DAILY DOSE
     Route: 048
  3. AMIODARONE HYDROCHLORIDE [Concomitant]
     Indication: CARDIAC FAILURE
     Dosage: 200 MG MILLIGRAM(S), DAILY DOSE
     Route: 048
  4. TAKEPRON [Concomitant]
     Indication: PROPHYLAXIS
     Dosage: 15 MG MILLIGRAM(S), DAILY DOSE
     Route: 048
  5. TANATRIL [Concomitant]
     Indication: CARDIAC FAILURE
     Dosage: 2.5 MG MILLIGRAM(S), DAILY DOSE
     Route: 048
  6. ALDACTONE A [Concomitant]
     Indication: CARDIAC FAILURE
     Dosage: 50 MG MILLIGRAM(S), DAILY DOSE
     Route: 048
  7. LASIX [Concomitant]
     Indication: CARDIAC FAILURE
     Dosage: 40 MG MILLIGRAM(S), DAILY DOSE
     Route: 048
  8. ARTIST [Concomitant]
     Indication: CARDIAC FAILURE
     Dosage: 20 MG MILLIGRAM(S), DAILY DOSE
     Route: 048
  9. NESINA [Concomitant]
     Dosage: 25 MG MILLIGRAM(S), DAILY DOSE
     Route: 048
  10. AMARYL [Concomitant]
     Dosage: 3 MG MILLIGRAM(S), DAILY DOSE
     Route: 048
  11. BASEN [Concomitant]
     Dosage: 0.9 MG MILLIGRAM(S), DAILY DOSE
     Route: 048
  12. ANPLAG [Concomitant]
     Dosage: 300 MG MILLIGRAM(S), DAILY DOSE
     Route: 048
  13. DOBUPUM [Concomitant]
     Indication: CARDIAC FAILURE
     Dosage: 5 UG/KG/MIN, DAILY DOSE
     Route: 042
     Dates: start: 20130210

REACTIONS (1)
  - Hypotension [Recovering/Resolving]
